FAERS Safety Report 13151665 (Version 3)
Quarter: 2017Q1

REPORT INFORMATION
  Report Type: Spontaneous
  Country: IT (occurrence: IT)
  Receive Date: 20170125
  Receipt Date: 20170210
  Transmission Date: 20170428
  Serious: Yes (Death)
  Sender: FDA-Public Use
  Company Number: IT-SA-2017SA011893

PATIENT
  Age: 77 Year
  Sex: Male
  Weight: 78 kg

DRUGS (3)
  1. IRINOTECAN HOSPIRA [Suspect]
     Active Substance: IRINOTECAN
     Route: 042
     Dates: start: 20161212, end: 20161212
  2. ZALTRAP [Suspect]
     Active Substance: ZIV-AFLIBERCEPT
     Indication: RECTAL CANCER
     Route: 042
     Dates: start: 20161212, end: 20161212
  3. FLUOROURACIL TEVA [Suspect]
     Active Substance: FLUOROURACIL
     Route: 042
     Dates: start: 20161212, end: 20161212

REACTIONS (5)
  - Multiple organ dysfunction syndrome [Fatal]
  - Ventricular dysfunction [Fatal]
  - Respiratory failure [Fatal]
  - Rectal haemorrhage [Fatal]
  - Atrial fibrillation [Fatal]

NARRATIVE: CASE EVENT DATE: 20161216
